FAERS Safety Report 11123377 (Version 2)
Quarter: 2015Q3

REPORT INFORMATION
  Report Type: Report from Study
  Country: NL (occurrence: NL)
  Receive Date: 20150519
  Receipt Date: 20150710
  Transmission Date: 20151125
  Serious: Yes (Disabling)
  Sender: FDA-Public Use
  Company Number: PHHY2015NL055717

PATIENT
  Age: 51 Year
  Sex: Female
  Weight: 94 kg

DRUGS (5)
  1. PANTOZOL [Concomitant]
     Active Substance: PANTOPRAZOLE SODIUM
     Indication: PRODUCT USED FOR UNKNOWN INDICATION
     Dosage: 40 MG, UNK
     Route: 065
  2. ACLASTA [Suspect]
     Active Substance: ZOLEDRONIC ACID
     Indication: OSTEOPOROSIS
     Dosage: 5 MG ONCE EVERY 52 WEEKS
     Route: 065
     Dates: start: 20120508
  3. ACLASTA [Suspect]
     Active Substance: ZOLEDRONIC ACID
     Dosage: 5 MG ONCE EVERY 52 WEEKS
     Route: 065
     Dates: start: 20131120
  4. HYDROCORTISONE. [Concomitant]
     Active Substance: HYDROCORTISONE
     Indication: ADRENOCORTICAL INSUFFICIENCY ACUTE
     Dosage: 10-5-5 MG
     Route: 065
  5. ACLASTA [Suspect]
     Active Substance: ZOLEDRONIC ACID
     Dosage: 5 MG ONCE EVERY 52 WEEKS
     Route: 065
     Dates: start: 20150506, end: 2015

REACTIONS (1)
  - Ankle fracture [Recovering/Resolving]

NARRATIVE: CASE EVENT DATE: 20150402
